FAERS Safety Report 7990879-9 (Version None)
Quarter: 2011Q4

REPORT INFORMATION
  Report Type: 
  Country: None (occurrence: None)
  Receive Date: 20111219
  Receipt Date: 20111026
  Transmission Date: 20120403
  Serious: Yes (Other)
  Sender: FDA-Public Use
  Company Number: US-ROCHE-1005031

PATIENT
  Sex: Female

DRUGS (2)
  1. XOLAIR [Suspect]
     Indication: ASTHMA
     Route: 058
     Dates: start: 20110901, end: 20110929
  2. IBUPROFEN (ADVIL) [Concomitant]

REACTIONS (4)
  - HAEMOLYTIC ANAEMIA [None]
  - RASH [None]
  - PAIN [None]
  - HEADACHE [None]
